FAERS Safety Report 12951980 (Version 1)
Quarter: 2016Q4

REPORT INFORMATION
  Report Type: Other
  Country: DE (occurrence: DE)
  Receive Date: 20161117
  Receipt Date: 20161117
  Transmission Date: 20170207
  Serious: Yes (Other)
  Sender: FDA-Public Use
  Company Number: DE-RARE DISEASE THERAPEUTICS, INC.-1059699

PATIENT
  Sex: Female

DRUGS (4)
  1. PURIXAN [Suspect]
     Active Substance: MERCAPTOPURINE
  2. PURIXAN [Suspect]
     Active Substance: MERCAPTOPURINE
  3. PURIXAN [Suspect]
     Active Substance: MERCAPTOPURINE
     Indication: AUTOIMMUNE HEPATITIS
  4. AZATHIOPRINE. [Suspect]
     Active Substance: AZATHIOPRINE

REACTIONS (6)
  - Vomiting [Unknown]
  - Drug intolerance [Unknown]
  - Off label use [Unknown]
  - Diarrhoea [Unknown]
  - Pancytopenia [Unknown]
  - Nausea [Unknown]
